FAERS Safety Report 17750788 (Version 2)
Quarter: 2020Q4

REPORT INFORMATION
  Report Type: Spontaneous
  Country: US (occurrence: US)
  Receive Date: 20200506
  Receipt Date: 20201124
  Transmission Date: 20210113
  Serious: No
  Sender: FDA-Public Use
  Company Number: US-VERTEX PHARMACEUTICALS-2020-009915

PATIENT
  Sex: Female

DRUGS (20)
  1. RANITIDINE. [Concomitant]
     Active Substance: RANITIDINE
  2. VENTOLIN [Concomitant]
     Active Substance: ALBUTEROL SULFATE
  3. TRIKAFTA [Suspect]
     Active Substance: ELEXACAFTOR\IVACAFTOR\TEZACAFTOR
     Indication: CYSTIC FIBROSIS
     Dosage: ELEXACAFTOR/TEZACAFTOR/ IVACAFTOR AND IVACAFTOR, FREQ UNK
     Route: 048
  4. DEXILANT [Concomitant]
     Active Substance: DEXLANSOPRAZOLE
  5. PANTOPRAZOLE SODIUM. [Concomitant]
     Active Substance: PANTOPRAZOLE SODIUM
  6. HUMALOG [Concomitant]
     Active Substance: INSULIN LISPRO
  7. TRESIBA [Concomitant]
     Active Substance: INSULIN DEGLUDEC
  8. VITAMIN D [COLECALCIFEROL] [Concomitant]
     Active Substance: CHOLECALCIFEROL
  9. REPLESTA [Concomitant]
     Active Substance: CHOLECALCIFEROL
  10. MIRALAX [Concomitant]
     Active Substance: POLYETHYLENE GLYCOL 3350
  11. CAYSTON [Suspect]
     Active Substance: AZTREONAM
     Indication: CYSTIC FIBROSIS
     Dosage: 75 MG, TID
  12. ADVAIR HFA [Concomitant]
     Active Substance: FLUTICASONE PROPIONATE\SALMETEROL XINAFOATE
  13. AZITHROMYCIN ANHYDROUS. [Concomitant]
     Active Substance: AZITHROMYCIN ANHYDROUS
  14. CREON [Concomitant]
     Active Substance: PANCRELIPASE AMYLASE\PANCRELIPASE LIPASE\PANCRELIPASE PROTEASE
  15. PREDNISONE. [Concomitant]
     Active Substance: PREDNISONE
  16. SODIUM CHLORIDE. [Concomitant]
     Active Substance: SODIUM CHLORIDE
  17. CALCIUM [Concomitant]
     Active Substance: CALCIUM
  18. ALBUTEROL [SALBUTAMOL] [Concomitant]
     Active Substance: ALBUTEROL
  19. ESTRADIOL. [Concomitant]
     Active Substance: ESTRADIOL
  20. PULMOZYME [Concomitant]
     Active Substance: DORNASE ALFA

REACTIONS (9)
  - Peripheral coldness [Not Recovered/Not Resolved]
  - Abdominal pain upper [Recovered/Resolved]
  - Enzyme level increased [Unknown]
  - Abnormal faeces [Not Recovered/Not Resolved]
  - Malabsorption [Unknown]
  - Rash [Recovered/Resolved]
  - Vomiting [Unknown]
  - Headache [Unknown]
  - Haemoptysis [Unknown]
